FAERS Safety Report 8240011-1 (Version None)
Quarter: 2012Q1

REPORT INFORMATION
  Report Type: 
  Country: None (occurrence: None)
  Receive Date: 20120309
  Receipt Date: 20100727
  Transmission Date: 20120608
  Serious: Yes (Other)
  Sender: FDA-Public Use
  Company Number: PHHY2010US49301

PATIENT
  Age: 49 Year
  Sex: Female

DRUGS (3)
  1. VICODIN [Concomitant]
  2. EXTAVIA [Suspect]
     Indication: MULTIPLE SCLEROSIS
     Dosage: 0.187 MG, QOD, SUBCUTANEOUS
     Route: 058
     Dates: start: 20100629
  3. TYLENOL PM (DIPHENHYDRAMINE, PARACETAMOL) [Concomitant]

REACTIONS (3)
  - DEPRESSION [None]
  - ARTHRALGIA [None]
  - CHILLS [None]
